FAERS Safety Report 11123485 (Version 1)
Quarter: 2015Q2

REPORT INFORMATION
  Report Type: Spontaneous
  Country: FR (occurrence: FR)
  Receive Date: 20150519
  Receipt Date: 20150519
  Transmission Date: 20150821
  Serious: Yes (Hospitalization)
  Sender: FDA-Public Use
  Company Number: FR-PFIZER INC-2015164530

PATIENT
  Age: 55 Year
  Sex: Male

DRUGS (10)
  1. FRAGMINE [Suspect]
     Active Substance: DALTEPARIN SODIUM
     Dosage: 5000 IU ANTIXA/0.2ML, UNK
     Route: 058
     Dates: start: 20150304, end: 20150327
  2. LEPTICUR [Concomitant]
     Active Substance: TROPATEPINE HYDROCHLORIDE
  3. FUROSEMIDE. [Concomitant]
     Active Substance: FUROSEMIDE
  4. ZOPICLONE [Concomitant]
     Active Substance: ZOPICLONE
  5. LOXAPAC [Concomitant]
     Active Substance: LOXAPINE SUCCINATE
  6. XANAX [Concomitant]
     Active Substance: ALPRAZOLAM
  7. AUGMENTIN [Suspect]
     Active Substance: AMOXICILLIN\CLAVULANATE POTASSIUM
     Indication: ANTIBIOTIC THERAPY
     Dosage: 1 DF, 3X/DAY
     Route: 048
     Dates: start: 20150305, end: 20150313
  8. RAMIPRIL. [Concomitant]
     Active Substance: RAMIPRIL
  9. ALFUZOSIN HYDROCHLORIDE. [Concomitant]
     Active Substance: ALFUZOSIN HYDROCHLORIDE
  10. EUPANTOL [Concomitant]
     Active Substance: PANTOPRAZOLE SODIUM

REACTIONS (1)
  - Hepatic enzyme increased [Recovered/Resolved]

NARRATIVE: CASE EVENT DATE: 20150313
